FAERS Safety Report 9736665 (Version 1)
Quarter: 2013Q4

REPORT INFORMATION
  Report Type: Spontaneous
  Country: US (occurrence: US)
  Receive Date: 20131206
  Receipt Date: 20131206
  Transmission Date: 20140711
  Serious: No
  Sender: FDA-Public Use
  Company Number: US-GILEAD-2009-0023269

PATIENT
  Sex: Female
  Weight: 72.03 kg

DRUGS (13)
  1. LETAIRIS [Suspect]
     Indication: PULMONARY ARTERIAL HYPERTENSION
     Route: 048
     Dates: start: 20071019
  2. LASIX [Concomitant]
  3. SPIRONOLACTONE [Concomitant]
  4. LOVENOX [Concomitant]
  5. ALLOPURINOL [Concomitant]
  6. CELLCEPT [Concomitant]
  7. PROTONIX [Concomitant]
  8. LACTULOSE [Concomitant]
  9. ACTIGALL [Concomitant]
  10. POTASSIUM CHLORIDE [Concomitant]
  11. SENNA-C [Concomitant]
  12. PREDNISONE [Concomitant]
  13. OXYCODONE [Concomitant]

REACTIONS (1)
  - Local swelling [Unknown]
